FAERS Safety Report 21826651 (Version 1)
Quarter: 2023Q1

REPORT INFORMATION
  Report Type: Spontaneous
  Country: US (occurrence: US)
  Receive Date: 20230106
  Receipt Date: 20230106
  Transmission Date: 20230418
  Serious: No
  Sender: FDA-Public Use
  Company Number: US-drreddys-SPO/USA/22/0158857

PATIENT
  Age: 29 Year
  Sex: Female

DRUGS (1)
  1. ACCUTANE [Suspect]
     Active Substance: ISOTRETINOIN
     Indication: Acne
     Dosage: RMA ISSUE DATE: 13 OCTOBER 2022 01:34:31 PM AND 14 NOVEMBER 2022 02:25:57 PM

REACTIONS (1)
  - Treatment noncompliance [Unknown]
